FAERS Safety Report 4591095-3 (Version None)
Quarter: 2005Q1

REPORT INFORMATION
  Report Type: 
  Country: None (occurrence: None)
  Receive Date: 20050222
  Receipt Date: 20050222
  Transmission Date: 20050727
  Serious: Yes (Death)
  Sender: FDA-Public Use
  Company Number: None

PATIENT
  Age: 47 Year
  Sex: Male
  Weight: 80.7403 kg

DRUGS (1)
  1. DICLOFENAC SODIUM [Suspect]
     Indication: TENOSYNOVITIS
     Dosage: 1 TABLET  AS NEEDED ORAL
     Route: 048

REACTIONS (6)
  - CHEST PAIN [None]
  - CIRCULATORY COLLAPSE [None]
  - DYSPNOEA [None]
  - GASTRIC DISORDER [None]
  - MYOCARDIAL INFARCTION [None]
  - VOMITING [None]
